FAERS Safety Report 8832227 (Version 1)
Quarter: 2012Q4

REPORT INFORMATION
  Report Type: 
  Country: JP (occurrence: JP)
  Receive Date: 20121009
  Receipt Date: 20121009
  Transmission Date: 20130627
  Serious: Yes (Other)
  Sender: FDA-Public Use
  Company Number: JP-BRISTOL-MYERS SQUIBB COMPANY-17013137

PATIENT
  Age: 7 None
  Sex: Male

DRUGS (3)
  1. TAXOL INJ [Suspect]
  2. CARBOPLATIN [Suspect]
  3. AVASTIN [Suspect]

REACTIONS (1)
  - Eosinophilic pneumonia [Unknown]
